FAERS Safety Report 4913944-9 (Version None)
Quarter: 2006Q1

REPORT INFORMATION
  Report Type: 
  Country: None (occurrence: None)
  Receive Date: 20060210
  Receipt Date: 20060126
  Transmission Date: 20060701
  Serious: Yes (Other)
  Sender: FDA-Public Use
  Company Number: 2006S1000899

PATIENT
  Sex: Female

DRUGS (1)
  1. FENTANYL TRANSDERMAL SYSTEM [Suspect]
     Dosage: 75 UG/HR; Q3D; TRANS
     Route: 062

REACTIONS (2)
  - DRUG WITHDRAWAL SYNDROME [None]
  - POOR QUALITY DRUG ADMINISTERED [None]
